FAERS Safety Report 17723116 (Version 1)
Quarter: 2020Q2

REPORT INFORMATION
  Report Type: Spontaneous
  Country: IT (occurrence: IT)
  Receive Date: 20200429
  Receipt Date: 20200429
  Transmission Date: 20200714
  Serious: Yes (Other)
  Sender: FDA-Public Use
  Company Number: IT-BRISTOL-MYERS SQUIBB COMPANY-BMS-2020-034272

PATIENT
  Age: 79 Year
  Sex: Male
  Weight: 71 kg

DRUGS (1)
  1. COUMADIN [Suspect]
     Active Substance: WARFARIN SODIUM
     Indication: ATRIAL FIBRILLATION
     Dosage: 4 MILLIGRAM, 1 DAY
     Route: 048
     Dates: start: 20170101, end: 20200414

REACTIONS (2)
  - Left ventricular failure [Unknown]
  - Cerebellar haemorrhage [Unknown]

NARRATIVE: CASE EVENT DATE: 20200416
